FAERS Safety Report 15049600 (Version 3)
Quarter: 2019Q4

REPORT INFORMATION
  Report Type: Report from Study
  Country: FR (occurrence: FR)
  Receive Date: 20180622
  Receipt Date: 20191122
  Transmission Date: 20200122
  Serious: Yes (Death, Other)
  Sender: FDA-Public Use
  Company Number: FR-JAZZ-2018-FR-009561

PATIENT

DRUGS (1)
  1. DEFITELIO [Suspect]
     Active Substance: DEFIBROTIDE SODIUM
     Indication: VENOOCCLUSIVE LIVER DISEASE
     Dosage: UNKNOWN DOSE
     Dates: start: 20151130, end: 20151202

REACTIONS (3)
  - Multiple organ dysfunction syndrome [Fatal]
  - Venoocclusive disease [Fatal]
  - Septic embolus [Fatal]

NARRATIVE: CASE EVENT DATE: 20151203
